FAERS Safety Report 8816069 (Version 2)
Quarter: 2012Q4

REPORT INFORMATION
  Report Type: 
  Country: NL (occurrence: NL)
  Receive Date: 20120928
  Receipt Date: 20121219
  Transmission Date: 20130627
  Serious: Yes (Other)
  Sender: FDA-Public Use
  Company Number: NL-PFIZER INC-2012231773

PATIENT
  Age: 63 Year
  Sex: Male
  Weight: 105 kg

DRUGS (1)
  1. ATORVASTATIN CALCIUM [Suspect]
     Indication: HYPERCHOLESTEROLAEMIA
     Dosage: 20 mg, UNK
     Route: 048
     Dates: start: 20120601, end: 20120901

REACTIONS (3)
  - Haematochezia [Unknown]
  - Abdominal discomfort [Unknown]
  - Constipation [Unknown]
